FAERS Safety Report 9787560 (Version 1)
Quarter: 2013Q4

REPORT INFORMATION
  Report Type: Spontaneous
  Country: IT (occurrence: IT)
  Receive Date: 20131230
  Receipt Date: 20131230
  Transmission Date: 20140711
  Serious: Yes (Hospitalization)
  Sender: FDA-Public Use
  Company Number: IT-ACCORD-020990

PATIENT
  Age: 62 Year
  Sex: Male
  Weight: 91 kg

DRUGS (1)
  1. DOCETAXEL [Suspect]
     Indication: BREAST CANCER MALE
     Dosage: 80 MG/4 ML: 1 AMPOULE (GLASS) OF 4 ML
     Route: 042
     Dates: start: 20131107, end: 20131107

REACTIONS (7)
  - Bone pain [Unknown]
  - Diarrhoea [Unknown]
  - Mucosal inflammation [Unknown]
  - Neutropenia [Unknown]
  - Pyrexia [Unknown]
  - Skin exfoliation [Unknown]
  - Vomiting [Unknown]
